FAERS Safety Report 15965927 (Version 2)
Quarter: 2019Q2

REPORT INFORMATION
  Report Type: Spontaneous
  Country: US (occurrence: US)
  Receive Date: 20190215
  Receipt Date: 20190423
  Transmission Date: 20190711
  Serious: No
  Sender: FDA-Public Use
  Company Number: US-PFIZER INC-2019067277

PATIENT
  Age: 52 Year
  Sex: Female

DRUGS (1)
  1. XELJANZ [Suspect]
     Active Substance: TOFACITINIB CITRATE
     Dosage: UNK, 2X/DAY
     Route: 048
     Dates: start: 201808

REACTIONS (4)
  - Insomnia [Unknown]
  - Pain [Unknown]
  - Mobility decreased [Unknown]
  - Swelling [Unknown]

NARRATIVE: CASE EVENT DATE: 20190205
